FAERS Safety Report 8072219-2 (Version None)
Quarter: 2012Q1

REPORT INFORMATION
  Report Type: 
  Country: None (occurrence: None)
  Receive Date: 20120126
  Receipt Date: 20120119
  Transmission Date: 20120608
  Serious: No
  Sender: FDA-Public Use
  Company Number: US-PFIZER INC-2012016051

PATIENT
  Sex: Male
  Weight: 77.098 kg

DRUGS (3)
  1. LOTREL [Concomitant]
     Indication: HYPERTENSION
     Dosage: UNK
  2. DETROL [Suspect]
     Indication: BLADDER CANCER
     Dosage: 4 MG, 1X/DAY
     Route: 048
     Dates: start: 20070101, end: 20111201
  3. DETROL [Suspect]
     Dosage: UNK
     Route: 048
     Dates: end: 20111201

REACTIONS (1)
  - DRUG INEFFECTIVE [None]
